FAERS Safety Report 8141621-2 (Version None)
Quarter: 2012Q1

REPORT INFORMATION
  Report Type: 
  Country: None (occurrence: None)
  Receive Date: 20120216
  Receipt Date: 20120208
  Transmission Date: 20120608
  Serious: Yes (Other)
  Sender: FDA-Public Use
  Company Number: US-JNJFOC-20120204773

PATIENT
  Sex: Female
  Weight: 63.5 kg

DRUGS (7)
  1. CLONAZEPAM [Concomitant]
     Indication: CONVULSION
     Route: 048
     Dates: start: 20040101
  2. ASPIRIN [Concomitant]
     Indication: PROPHYLAXIS
     Route: 048
     Dates: start: 20060101
  3. TOPAMAX [Suspect]
     Indication: CONVULSION
     Route: 048
     Dates: start: 19970101, end: 20010101
  4. CYMBALTA [Concomitant]
     Indication: ANXIETY
     Route: 048
     Dates: start: 20080101
  5. FISH OIL [Concomitant]
     Indication: MEDICAL DIET
     Route: 048
     Dates: start: 20050101
  6. TOPIRAMATE [Suspect]
     Indication: CONVULSION
     Route: 048
     Dates: start: 20010101
  7. UNKNOWN MEDICATION [Suspect]
     Indication: CONVULSION
     Route: 065

REACTIONS (3)
  - CONVULSION [None]
  - COMPLEX PARTIAL SEIZURES [None]
  - FEELING ABNORMAL [None]
